FAERS Safety Report 18785489 (Version 3)
Quarter: 2021Q2

REPORT INFORMATION
  Report Type: Spontaneous
  Country: US (occurrence: US)
  Receive Date: 20210125
  Receipt Date: 20210504
  Transmission Date: 20210717
  Serious: Yes (Hospitalization)
  Sender: FDA-Public Use
  Company Number: US-NOVOPROD-781797

PATIENT
  Age: 70 Year
  Sex: Male
  Weight: 74.8 kg

DRUGS (4)
  1. VALSARTAN + HCTZ [Concomitant]
     Active Substance: HYDROCHLOROTHIAZIDE\VALSARTAN
     Indication: PRODUCT USED FOR UNKNOWN INDICATION
     Dosage: 160 MG/12.5 MG
     Route: 048
  2. OZEMPIC [Suspect]
     Active Substance: SEMAGLUTIDE
     Dosage: 0.5 MG, QW
     Route: 058
     Dates: end: 20210112
  3. OZEMPIC [Suspect]
     Active Substance: SEMAGLUTIDE
     Indication: GLUCOSE TOLERANCE IMPAIRED
     Dosage: 0.25 MG, QW
     Route: 058
     Dates: start: 202012
  4. CRESTOR [Concomitant]
     Active Substance: ROSUVASTATIN CALCIUM
     Indication: PRODUCT USED FOR UNKNOWN INDICATION
     Dosage: 40 NG, QD
     Route: 048

REACTIONS (5)
  - Acute kidney injury [Recovered/Resolved]
  - Off label use [Recovered/Resolved]
  - Hypokalaemia [Recovered/Resolved]
  - Renal failure [Recovered/Resolved]
  - Off label use [Recovered/Resolved]

NARRATIVE: CASE EVENT DATE: 202012
